FAERS Safety Report 9486111 (Version 1)
Quarter: 2013Q3

REPORT INFORMATION
  Report Type: Spontaneous
  Country: US (occurrence: None)
  Receive Date: 20130827
  Receipt Date: 20130827
  Transmission Date: 20140515
  Serious: Yes (Disabling, Other)
  Sender: FDA-Public Use
  Company Number: None

PATIENT
  Age: 54 Year
  Sex: Female
  Weight: 53.52 kg

DRUGS (2)
  1. MONTELUKAST [Suspect]
     Indication: ASTHMA
     Dosage: 10 MG 1 DAILY DAILY BY MOUTH
     Route: 048
     Dates: start: 2012, end: 20130801
  2. MONTELUKAST [Suspect]
     Indication: MULTIPLE ALLERGIES
     Dosage: 10 MG 1 DAILY DAILY BY MOUTH
     Route: 048
     Dates: start: 2012, end: 20130801

REACTIONS (6)
  - Abdominal pain upper [None]
  - Drug effect decreased [None]
  - Product odour abnormal [None]
  - Asthma [None]
  - Condition aggravated [None]
  - Product substitution issue [None]
